FAERS Safety Report 7858669-5 (Version None)
Quarter: 2011Q3

REPORT INFORMATION
  Report Type: 
  Country: None (occurrence: None)
  Receive Date: 20110923
  Receipt Date: 20101006
  Transmission Date: 20111222
  Serious: Yes (Other)
  Sender: FDA-Public Use
  Company Number: 10-017

PATIENT

DRUGS (1)
  1. WHOLE EGG [Suspect]
     Indication: SKIN TEST
     Dosage: 5ML SCRATCH

REACTIONS (2)
  - NO ADVERSE EVENT [None]
  - SKIN TEST NEGATIVE [None]
